FAERS Safety Report 4274879-0 (Version None)
Quarter: 2004Q1

REPORT INFORMATION
  Report Type: 
  Country: None (occurrence: None)
  Receive Date: 20040116
  Receipt Date: 20040112
  Transmission Date: 20041129
  Serious: Yes (Hospitalization, Congenital Anomaly)
  Sender: FDA-Public Use
  Company Number: MK200401-0116-1

PATIENT
  Sex: Male

DRUGS (3)
  1. ANAFRANIL CAP [Suspect]
     Dosage: TRANSPLACENTAL
     Route: 064
     Dates: end: 20030527
  2. LYSANXIA [Suspect]
     Dosage: TRANSPLACENTAL
     Route: 064
     Dates: end: 20030527
  3. DEROXAT [Concomitant]

REACTIONS (2)
  - HYPOSPADIAS [None]
  - MATERNAL DRUGS AFFECTING FOETUS [None]
